FAERS Safety Report 4690806-6 (Version None)
Quarter: 2005Q2

REPORT INFORMATION
  Report Type: 
  Country: None (occurrence: None)
  Receive Date: 20050615
  Receipt Date: 20050531
  Transmission Date: 20051028
  Serious: Yes (Hospitalization)
  Sender: FDA-Public Use
  Company Number: HQWYE199003JUN05

PATIENT
  Age: 68 Year
  Sex: Male

DRUGS (3)
  1. ENBREL [Suspect]
     Indication: DRUG USE FOR UNKNOWN INDICATION
     Route: 065
     Dates: start: 19991025, end: 20050101
  2. PREDNISONE TAB [Concomitant]
     Dosage: 5 - 10 MG (FREQUENCY UNKNOWN)
  3. CELEBREX [Concomitant]
     Dosage: UNKNOWN DOSE IRREGULARLY

REACTIONS (4)
  - DISSEMINATED TUBERCULOSIS [None]
  - HEPATITIS CHOLESTATIC [None]
  - PLEURAL EFFUSION [None]
  - THROMBOCYTOPENIA [None]
